FAERS Safety Report 10949859 (Version 1)
Quarter: 2015Q1

REPORT INFORMATION
  Report Type: Spontaneous
  Country: FR (occurrence: FR)
  Receive Date: 20150324
  Receipt Date: 20150324
  Transmission Date: 20150721
  Serious: Yes (Death, Hospitalization)
  Sender: FDA-Public Use
  Company Number: FR-PFIZER INC-2015100061

PATIENT
  Age: 86 Year
  Sex: Male

DRUGS (14)
  1. KEPPRA [Suspect]
     Active Substance: LEVETIRACETAM
     Dosage: 1000 MG, 2X/DAY
     Route: 048
     Dates: start: 20150119, end: 20150225
  2. BISOPROLOL [Concomitant]
     Active Substance: BISOPROLOL
     Dosage: 10 MG, 1X/DAY
  3. INEXIUM [Suspect]
     Active Substance: ESOMEPRAZOLE
     Dosage: 20 MG, 1X/DAY
     Route: 048
     Dates: start: 20150127, end: 20150225
  4. MODOPAR [Concomitant]
     Active Substance: BENSERAZIDE HYDROCHLORIDE\LEVODOPA
     Dosage: 1 DF, 2X/DAY
  5. ACTRAPID [Concomitant]
     Active Substance: INSULIN HUMAN
     Dosage: 4 IU, 3X/DAY
  6. COMTAN [Concomitant]
     Active Substance: ENTACAPONE
     Dosage: 200 MG, 3X/DAY
  7. MEDROL [Suspect]
     Active Substance: METHYLPREDNISOLONE
     Dosage: 150 MG, 1X/DAY
     Route: 048
     Dates: start: 201501, end: 20150225
  8. XATRAL L. P [Suspect]
     Active Substance: ALFUZOSIN HYDROCHLORIDE
     Dosage: 10 MG, 1X/DAY
     Route: 048
     Dates: start: 201501, end: 20150225
  9. ATARAX [Concomitant]
     Active Substance: HYDROXYZINE\HYDROXYZINE HYDROCHLORIDE
     Dosage: 50 MG, 1X/DAY
  10. MODOPAR [Concomitant]
     Active Substance: BENSERAZIDE HYDROCHLORIDE\LEVODOPA
     Dosage: 1 DF, 1X/DAY
  11. DAFALGAN [Concomitant]
     Active Substance: ACETAMINOPHEN
     Dosage: 1 DF, 3X/DAY AS NEEDED
  12. TRIFLUCAN [Suspect]
     Active Substance: FLUCONAZOLE
     Indication: ORAL CANDIDIASIS
     Dosage: UNK
     Route: 048
     Dates: start: 20150214, end: 20150223
  13. TAREG [Concomitant]
     Active Substance: VALSARTAN
     Dosage: 160 MG, 1X/DAY
  14. LOVENOX [Concomitant]
     Active Substance: ENOXAPARIN SODIUM
     Dosage: UNK

REACTIONS (1)
  - Thrombocytopenia [Recovering/Resolving]

NARRATIVE: CASE EVENT DATE: 20150216
